FAERS Safety Report 16789503 (Version 3)
Quarter: 2019Q4

REPORT INFORMATION
  Report Type: Spontaneous
  Country: PT (occurrence: PT)
  Receive Date: 20190910
  Receipt Date: 20191223
  Transmission Date: 20200122
  Serious: Yes (Other)
  Sender: FDA-Public Use
  Company Number: PT-ACCORD-137454

PATIENT
  Age: 9 Year
  Sex: Female

DRUGS (13)
  1. CARBINIB [Suspect]
     Active Substance: ACETAZOLAMIDE
     Indication: GLAUCOMA
     Dosage: 250 MG, STRENGTH 250 MG, PILLS
     Route: 048
     Dates: start: 2014
  2. TOCILIZUMAB. [Concomitant]
     Active Substance: TOCILIZUMAB
     Indication: PRODUCT USED FOR UNKNOWN INDICATION
     Dosage: 12 MG/KG/EVERY TWO WEEKS
     Route: 042
  3. METHOTREXATE. [Suspect]
     Active Substance: METHOTREXATE
     Indication: IMMUNOSUPPRESSION
     Route: 058
     Dates: start: 2011
  4. BRINZOLAMIDE [Suspect]
     Active Substance: BRINZOLAMIDE
     Indication: INTRAOCULAR PRESSURE TEST
     Dosage: STRENGTH : 10 MG
     Route: 061
  5. RONIC [Suspect]
     Active Substance: DEXAMETHASONE SODIUM PHOSPHATE
     Indication: PRODUCT USED FOR UNKNOWN INDICATION
     Dosage: TWICE DAILY EACH, IN BOTH EYES, STRENGTH 1 MG / ML
     Route: 061
  6. BRIMONIDINE [Suspect]
     Active Substance: BRIMONIDINE TARTRATE
     Indication: INTRAOCULAR PRESSURE TEST
     Dosage: STRENGTH 2
     Route: 061
  7. ADALIMUMAB [Suspect]
     Active Substance: ADALIMUMAB
     Indication: JUVENILE IDIOPATHIC ARTHRITIS
     Dosage: 24 MG/M2/EVERY TWO WEEKS
     Route: 058
     Dates: start: 2014
  8. DEFLAZACORT [Suspect]
     Active Substance: DEFLAZACORT
     Indication: JUVENILE IDIOPATHIC ARTHRITIS
     Route: 048
     Dates: start: 2011
  9. IBUPROFEN. [Suspect]
     Active Substance: IBUPROFEN
     Indication: JUVENILE IDIOPATHIC ARTHRITIS
     Route: 048
     Dates: start: 2010
  10. METHOTREXATE. [Suspect]
     Active Substance: METHOTREXATE
     Indication: JUVENILE IDIOPATHIC ARTHRITIS
     Dosage: 15 MG/M2/WEEK
     Route: 048
     Dates: start: 2011
  11. LATANOPROST. [Suspect]
     Active Substance: LATANOPROST
     Indication: GLAUCOMA
     Dosage: STRENGTH: 0.05
     Route: 061
     Dates: start: 2014
  12. ADALIMUMAB [Suspect]
     Active Substance: ADALIMUMAB
     Indication: IMMUNOSUPPRESSION
  13. TIMOLOL. [Suspect]
     Active Substance: TIMOLOL
     Indication: INTRAOCULAR PRESSURE INCREASED
     Dosage: STRENGTH 5
     Route: 061

REACTIONS (4)
  - Muscle atrophy [Unknown]
  - Body height below normal [Unknown]
  - Cushing^s syndrome [Unknown]
  - Treatment failure [Unknown]
